FAERS Safety Report 4315804-3 (Version None)
Quarter: 2004Q1

REPORT INFORMATION
  Report Type: 
  Country: None (occurrence: None)
  Receive Date: 20040311
  Receipt Date: 20040311
  Transmission Date: 20041129
  Serious: No
  Sender: FDA-Public Use
  Company Number: None

PATIENT

DRUGS (2)
  1. CLINDAMYCIN HCL [Suspect]
     Dosage: 300MG/2ML SINGLE-DOSE VIAL
  2. TOBRAMYCIN [Suspect]
     Dosage: 80MG/2ML MULTI-DOSE VIALS

REACTIONS (1)
  - MEDICATION ERROR [None]
